FAERS Safety Report 17612410 (Version 1)
Quarter: 2020Q2

REPORT INFORMATION
  Report Type: Spontaneous
  Country: CN (occurrence: CN)
  Receive Date: 20200401
  Receipt Date: 20200401
  Transmission Date: 20200713
  Serious: No
  Sender: FDA-Public Use
  Company Number: CN-B.BRAUN MEDICAL INC.-2082221

PATIENT
  Age: 48 Year
  Sex: Female
  Weight: 52 kg

DRUGS (2)
  1. NUTRILIPID I.V. FAT EMULSION [Suspect]
     Active Substance: SOYBEAN OIL
     Indication: INTESTINAL OBSTRUCTION
     Route: 041
     Dates: start: 20200217, end: 20200217
  2. COMPOUND AMINO ACID INJECTION (18AA-)VII [Suspect]
     Active Substance: AMINO ACIDS, SOURCE UNSPECIFIED
     Route: 041
     Dates: start: 20200217, end: 20200217

REACTIONS (3)
  - Nausea [Recovered/Resolved]
  - Chest discomfort [Recovered/Resolved]
  - Chills [Recovered/Resolved]

NARRATIVE: CASE EVENT DATE: 20200217
